FAERS Safety Report 24674150 (Version 1)
Quarter: 2024Q4

REPORT INFORMATION
  Report Type: Spontaneous
  Country: US (occurrence: US)
  Receive Date: 20241128
  Receipt Date: 20241128
  Transmission Date: 20250114
  Serious: Yes (Other)
  Sender: DELCATH SYSTEMS
  Company Number: US-DELCATH SYSTEMS-DELC-000006

PATIENT
  Sex: Female

DRUGS (1)
  1. HEPZATO [Suspect]
     Active Substance: MELPHALAN
     Indication: Metastases to liver
     Dosage: UNK
     Route: 013

REACTIONS (2)
  - Blindness transient [Recovered/Resolved]
  - Embolism [Recovered/Resolved]
